FAERS Safety Report 24615108 (Version 2)
Quarter: 2024Q4

REPORT INFORMATION
  Report Type: Spontaneous
  Country: US (occurrence: US)
  Receive Date: 20241113
  Receipt Date: 20241115
  Transmission Date: 20250114
  Serious: Yes (Other)
  Sender: PFIZER
  Company Number: US-MLMSERVICE-20241101-PI247086-00271-1

PATIENT
  Age: 2 Year
  Sex: Male

DRUGS (18)
  1. CARBOPLATIN [Suspect]
     Active Substance: CARBOPLATIN
     Indication: Neuroblastoma
     Dosage: INTERMEDIATE-RISK NB TREATMENT WAS INITIATED PER A3961/8 TOTAL CYCLES OF INTERMEDIATE RISK, CYCLIC
  2. CYTARABINE [Suspect]
     Active Substance: CYTARABINE
     Indication: B-cell type acute leukaemia
     Dosage: UNK UNK, CYCLIC
     Route: 037
  3. CYTARABINE [Suspect]
     Active Substance: CYTARABINE
     Dosage: REMISSION INDUCTION THERAPY
  4. METHOTREXATE SODIUM [Suspect]
     Active Substance: METHOTREXATE SODIUM
     Indication: B-cell type acute leukaemia
     Dosage: UNK, CYCLIC
     Route: 037
  5. METHOTREXATE SODIUM [Suspect]
     Active Substance: METHOTREXATE SODIUM
     Dosage: HIGH DOSE; CONSOLIDATION
     Route: 037
  6. DOXORUBICIN HYDROCHLORIDE [Suspect]
     Active Substance: DOXORUBICIN HYDROCHLORIDE
     Indication: Neuroblastoma
     Dosage: INTERMEDIATE-RISK NB TREATMENT WAS INITIATED PER A3961/8 TOTAL CYCLES OF INTERMEDIATE RISK, CYCLIC
  7. HYDROCORTISONE SODIUM SUCCINATE [Suspect]
     Active Substance: HYDROCORTISONE SODIUM SUCCINATE
     Indication: B-cell type acute leukaemia
     Dosage: UNK, CYCLIC
     Route: 037
  8. VINCRISTINE SULFATE [Suspect]
     Active Substance: VINCRISTINE SULFATE
     Indication: B-cell type acute leukaemia
     Dosage: REMISSION INDUCTION THERAPY, CYCLIC
  9. VINCRISTINE SULFATE [Suspect]
     Active Substance: VINCRISTINE SULFATE
     Dosage: INTERIM THERAPY, CYCLIC
  10. PREDNISONE [Suspect]
     Active Substance: PREDNISONE
     Indication: B-cell type acute leukaemia
     Dosage: REMISSION INDUCTION THERAPY, CYCLIC
  11. DAUNORUBICIN [Suspect]
     Active Substance: DAUNORUBICIN
     Indication: B-cell type acute leukaemia
     Dosage: REMISSION INDUCTION THERAPY CYCLIC
  12. PEG/L-ASPARAGINASE [Suspect]
     Active Substance: PEGASPARGASE
     Indication: B-cell type acute leukaemia
     Dosage: REMISSION INDUCTION THERAPY, CYCLIC
  13. CYCLOPHOSPHAMIDE [Suspect]
     Active Substance: CYCLOPHOSPHAMIDE
     Indication: B-cell type acute leukaemia
     Dosage: REMISSION INDUCTION THERAPY, CYCLIC
     Route: 037
  14. CYCLOPHOSPHAMIDE [Suspect]
     Active Substance: CYCLOPHOSPHAMIDE
     Indication: Neuroblastoma
     Dosage: INTERMEDIATE-RISK NB TREATMENT WAS INITIATED AS PER A3961
     Route: 037
  15. MERCAPTOPURINE [Suspect]
     Active Substance: MERCAPTOPURINE
     Indication: B-cell type acute leukaemia
     Dosage: REMISSION INDUCTION THERAPY
  16. MERCAPTOPURINE [Suspect]
     Active Substance: MERCAPTOPURINE
     Dosage: CONSOLIDATION, CYCLIC
  17. ETOPOSIDE [Suspect]
     Active Substance: ETOPOSIDE
     Indication: Neuroblastoma
     Dosage: INTERMEDIATE-RISK NB TREATMENT WAS INITIATED PER A3961/8 TOTAL CYCLES OF INTERMEDIATE RISK, CYCLIC
  18. DEXAMETHASONE [Suspect]
     Active Substance: DEXAMETHASONE
     Indication: B-cell type acute leukaemia
     Dosage: UNK, CYCLIC
     Route: 048

REACTIONS (2)
  - Myelosuppression [Unknown]
  - Off label use [Unknown]
